FAERS Safety Report 5622638-6 (Version None)
Quarter: 2008Q1

REPORT INFORMATION
  Report Type: 
  Country: None (occurrence: None)
  Receive Date: 20080211
  Receipt Date: 20080211
  Transmission Date: 20080703
  Serious: Yes (Hospitalization)
  Sender: FDA-Public Use
  Company Number: None

PATIENT
  Age: 73 Year
  Sex: Male

DRUGS (1)
  1. VANCOMYCIN [Suspect]
     Dosage: 1GM EVERY DAY IV
     Route: 042
     Dates: start: 20071031, end: 20071130

REACTIONS (1)
  - NEPHRITIS [None]
